FAERS Safety Report 16259271 (Version 2)
Quarter: 2019Q2

REPORT INFORMATION
  Report Type: Report from Study
  Country: US (occurrence: US)
  Receive Date: 20190501
  Receipt Date: 20190524
  Transmission Date: 20190711
  Serious: Yes (Hospitalization)
  Sender: FDA-Public Use
  Company Number: US-ROCHE-2167596

PATIENT
  Age: 67 Year
  Sex: Female
  Weight: 62.1 kg

DRUGS (3)
  1. LIPOSOMAL DOXORUBICIN HYDROCHLORIDE [Suspect]
     Active Substance: DOXORUBICIN HYDROCHLORIDE
     Indication: OVARIAN EPITHELIAL CANCER
     Dosage: MOST RECENT DOSE PRIOR TO EVENT ONSET ON 05/OCT/2018 (66 MG)
     Route: 042
     Dates: start: 20180308
  2. ATEZOLIZUMAB. [Suspect]
     Active Substance: ATEZOLIZUMAB
     Indication: OVARIAN EPITHELIAL CANCER
     Dosage: OVER 1 HOUR ON DAY 1?CYCLE: 28 DAYS?DATE OF LAST DOSE PRIOR TO SAE: 15/JUN/2018?LAST DOSE PRIOR TO E
     Route: 041
     Dates: start: 20180308
  3. BEVACIZUMAB. [Suspect]
     Active Substance: BEVACIZUMAB
     Indication: OVARIAN EPITHELIAL CANCER
     Dosage: 10 MG/KG OVER 90 MINUTES ON DAYS 1 AND 15?DATE OF LAST DOSE PRIOR TO SAE: 15/JUN/2018 (1223 MG)
     Route: 042
     Dates: start: 20180308

REACTIONS (3)
  - Hypertensive urgency [Recovering/Resolving]
  - Peripheral motor neuropathy [Unknown]
  - Headache [Recovering/Resolving]

NARRATIVE: CASE EVENT DATE: 20180710
